FAERS Safety Report 9028050 (Version 1)
Quarter: 2013Q1

REPORT INFORMATION
  Report Type: Spontaneous
  Country: US (occurrence: US)
  Receive Date: 20130123
  Receipt Date: 20130123
  Transmission Date: 20140127
  Serious: Yes (Life-Threatening, Hospitalization, Other)
  Sender: FDA-Public Use
  Company Number: US-TARO-2013P1000678

PATIENT
  Age: 6 Year
  Sex: Female
  Weight: 19.05 kg

DRUGS (7)
  1. CARBAMAZEPINE [Suspect]
     Route: 048
     Dates: start: 2011
  2. CARBAMAZEPINE [Suspect]
     Route: 048
     Dates: start: 2011
  3. CARBAMAZEPINE [Suspect]
     Route: 048
     Dates: start: 2011
  4. CARBAMAZEPINE [Suspect]
     Route: 048
     Dates: start: 2012, end: 2012
  5. KEPPRA [Concomitant]
  6. PREVACID [Concomitant]
  7. SINGULAIR [Concomitant]

REACTIONS (7)
  - Convulsion [Not Recovered/Not Resolved]
  - Somnolence [Not Recovered/Not Resolved]
  - Blood glucose increased [Not Recovered/Not Resolved]
  - Underdose [Recovered/Resolved]
  - Ear infection [Recovered/Resolved]
  - Pyrexia [Not Recovered/Not Resolved]
  - Post gastric surgery syndrome [Unknown]
